FAERS Safety Report 9552828 (Version 1)
Quarter: 2013Q3

REPORT INFORMATION
  Report Type: Spontaneous
  Country: US (occurrence: None)
  Receive Date: 20130724
  Receipt Date: 20130724
  Transmission Date: 20140515
  Serious: Yes (Other)
  Sender: FDA-Public Use
  Company Number: PHEH2012US020157

PATIENT
  Age: 66 Year
  Sex: Female

DRUGS (2)
  1. GLEEVEC [Suspect]
     Indication: CHRONIC MYELOID LEUKAEMIA
     Route: 048
     Dates: start: 20111104
  2. TRACLEER (BOSENTAN) TABLET [Concomitant]

REACTIONS (4)
  - Angioedema [None]
  - Pericardial effusion [None]
  - Chest pain [None]
  - Dyspnoea [None]
